FAERS Safety Report 11272358 (Version 1)
Quarter: 2015Q3

REPORT INFORMATION
  Report Type: Spontaneous
  Country: US (occurrence: None)
  Receive Date: 20150713
  Receipt Date: 20150713
  Transmission Date: 20151125
  Serious: Yes (Hospitalization)
  Sender: FDA-Public Use
  Company Number: None

PATIENT
  Age: 57 Year
  Sex: Female

DRUGS (1)
  1. HARVONI [Suspect]
     Active Substance: LEDIPASVIR\SOFOSBUVIR
     Indication: HEPATITIS C
     Route: 048
     Dates: start: 20150519

REACTIONS (12)
  - Vomiting [None]
  - Asthenia [None]
  - Fatigue [None]
  - Dysgeusia [None]
  - Insomnia [None]
  - Dehydration [None]
  - Diverticulitis [None]
  - Gastric disorder [None]
  - Diarrhoea [None]
  - Weight decreased [None]
  - Headache [None]
  - Blood pressure increased [None]

NARRATIVE: CASE EVENT DATE: 20150626
